FAERS Safety Report 11287924 (Version 3)
Quarter: 2015Q3

REPORT INFORMATION
  Report Type: Spontaneous
  Country: US (occurrence: US)
  Receive Date: 20150721
  Receipt Date: 20150923
  Transmission Date: 20151125
  Serious: Yes (Hospitalization)
  Sender: FDA-Public Use
  Company Number: US-PFIZER INC-2015237437

PATIENT
  Age: 56 Year
  Sex: Female
  Weight: 82 kg

DRUGS (10)
  1. ADVIL [Suspect]
     Active Substance: IBUPROFEN
     Indication: ARTHRALGIA
     Dosage: TWO TO THREE TABLETS (400 MG TO 600 MG) BY MOUTH EVERY FOUR TO SIX HOURS
     Route: 048
     Dates: start: 2012, end: 2015
  2. ADVIL [Suspect]
     Active Substance: IBUPROFEN
     Indication: PAIN
  3. ADVIL [Suspect]
     Active Substance: IBUPROFEN
     Indication: PAIN
  4. MOTRIN [Suspect]
     Active Substance: IBUPROFEN
     Indication: ARTHRITIS
     Dosage: 2 TO 3 TABLETS (400 MG TO 600 MG)
     Dates: start: 2012, end: 2015
  5. MOTRIN [Suspect]
     Active Substance: IBUPROFEN
     Indication: PAIN
  6. ADVIL [Suspect]
     Active Substance: IBUPROFEN
     Indication: HEADACHE
  7. ADVIL [Suspect]
     Active Substance: IBUPROFEN
     Indication: HEADACHE
  8. ADVIL [Suspect]
     Active Substance: IBUPROFEN
     Indication: ARTHRALGIA
     Dosage: TWO TO THREE CAPSULES BY MOUTH EVERY FOUR TO SIX HOURS
     Route: 048
  9. MOTRIN [Suspect]
     Active Substance: IBUPROFEN
     Indication: HEADACHE
  10. METOPROLOL [Concomitant]
     Active Substance: METOPROLOL
     Indication: HYPERTENSION
     Dosage: 50 MG, 1X/DAY
     Route: 048
     Dates: start: 2010

REACTIONS (4)
  - Myocardial infarction [Recovered/Resolved]
  - Blood pressure increased [Recovered/Resolved]
  - Supraventricular tachycardia [Recovered/Resolved]
  - Troponin increased [Recovered/Resolved]

NARRATIVE: CASE EVENT DATE: 20150310
